FAERS Safety Report 5460364-7 (Version None)
Quarter: 2007Q3

REPORT INFORMATION
  Report Type: 
  Country: None (occurrence: None)
  Receive Date: 20070919
  Receipt Date: 20070626
  Transmission Date: 20080115
  Serious: Yes (Other)
  Sender: FDA-Public Use
  Company Number: US-ASTRAZENECA-2007UW15215

PATIENT
  Age: 29 Year
  Sex: Female

DRUGS (10)
  1. SEROQUEL [Suspect]
     Indication: BIPOLAR DISORDER
     Route: 048
     Dates: start: 20061201
  2. SEROQUEL [Suspect]
     Indication: ANXIETY
     Route: 048
     Dates: start: 20061201
  3. SEROQUEL [Suspect]
     Indication: AGITATION
     Route: 048
     Dates: start: 20061201
  4. SEROQUEL [Suspect]
     Route: 048
     Dates: start: 20070201
  5. SEROQUEL [Suspect]
     Route: 048
     Dates: start: 20070201
  6. SEROQUEL [Suspect]
     Route: 048
     Dates: start: 20070201
  7. SEROQUEL [Suspect]
     Route: 048
     Dates: start: 20070101
  8. SEROQUEL [Suspect]
     Route: 048
     Dates: start: 20070101
  9. SEROQUEL [Suspect]
     Route: 048
     Dates: start: 20070101
  10. LITHIUM [Concomitant]
     Dosage: AT BEDTIME 30 MINUTES BEFORE SEROQUEL

REACTIONS (1)
  - PALPITATIONS [None]
